FAERS Safety Report 6488050-5 (Version None)
Quarter: 2009Q4

REPORT INFORMATION
  Report Type: 
  Country: None (occurrence: None)
  Receive Date: 20091210
  Receipt Date: 20091202
  Transmission Date: 20100525
  Serious: Yes (Other)
  Sender: FDA-Public Use
  Company Number: US-MERCK-0912USA00492

PATIENT
  Age: 10 Year
  Sex: Female

DRUGS (6)
  1. SINGULAIR [Suspect]
     Indication: ASTHMA
     Route: 048
     Dates: start: 20090901, end: 20091118
  2. SINGULAIR [Suspect]
     Indication: HYPERSENSITIVITY
     Route: 048
     Dates: start: 20090901, end: 20091118
  3. ALBUTEROL [Concomitant]
     Route: 065
  4. FLOVENT [Concomitant]
     Route: 065
  5. ZYRTEC [Concomitant]
     Route: 065
  6. VERAMYST [Concomitant]
     Route: 065

REACTIONS (1)
  - SUICIDAL IDEATION [None]
